FAERS Safety Report 23336914 (Version 1)
Quarter: 2023Q4

REPORT INFORMATION
  Report Type: Spontaneous
  Country: US (occurrence: US)
  Receive Date: 20231226
  Receipt Date: 20231226
  Transmission Date: 20240109
  Serious: No
  Sender: FDA-Public Use
  Company Number: US-ELI_LILLY_AND_COMPANY-US202312011921

PATIENT
  Sex: Female

DRUGS (1)
  1. MOUNJARO [Suspect]
     Active Substance: TIRZEPATIDE
     Indication: Product used for unknown indication
     Dosage: 2.5 MG, UNKNOWN
     Route: 065

REACTIONS (7)
  - Blood glucose increased [Unknown]
  - Visual impairment [Unknown]
  - Neuropathy peripheral [Unknown]
  - Glycosylated haemoglobin increased [Unknown]
  - Malaise [Unknown]
  - Abdominal discomfort [Unknown]
  - Nausea [Unknown]
